FAERS Safety Report 9082909 (Version 1)
Quarter: 2013Q1

REPORT INFORMATION
  Report Type: Spontaneous
  Country: US (occurrence: US)
  Receive Date: 20130130
  Receipt Date: 20130130
  Transmission Date: 20140127
  Serious: Yes (Hospitalization)
  Sender: FDA-Public Use
  Company Number: PHEH2013US001946

PATIENT
  Sex: Female

DRUGS (10)
  1. DIOVAN HCT [Suspect]
     Indication: HYPERTENSION
     Dosage: 1 DF (320 MG VALS + UNK MG HCTZ), UNK
  2. DIOVAN HCT [Suspect]
     Dosage: 1 DF (160 MG VALS + 12.5 MG HCTZ), QD
     Route: 048
  3. SYNTHROID [Concomitant]
  4. METFORMIN [Concomitant]
  5. HYDROCHLOROTHIAZIDE [Concomitant]
  6. EFFEXOR [Concomitant]
  7. ROSUVASTATIN [Concomitant]
  8. ZETIA [Concomitant]
  9. ACTOS [Concomitant]
  10. VICTOZA [Concomitant]

REACTIONS (4)
  - Musculoskeletal pain [Unknown]
  - Hypotension [Unknown]
  - Dizziness [Unknown]
  - Drug ineffective [Unknown]
